FAERS Safety Report 19760247 (Version 3)
Quarter: 2021Q4

REPORT INFORMATION
  Report Type: Spontaneous
  Country: US (occurrence: US)
  Receive Date: 20210830
  Receipt Date: 20211027
  Transmission Date: 20220303
  Serious: No
  Sender: FDA-Public Use
  Company Number: US-TEVA-2021-US-1945538

PATIENT
  Age: 70 Year
  Sex: Female

DRUGS (2)
  1. ESTRADIOL [Suspect]
     Active Substance: ESTRADIOL
     Route: 067
  2. RAMIPRIL [Concomitant]
     Active Substance: RAMIPRIL
     Dosage: 7.5 PER DAY

REACTIONS (4)
  - Application site pain [Unknown]
  - Application site haemorrhage [Unknown]
  - Device delivery system issue [Unknown]
  - Device difficult to use [Unknown]
